FAERS Safety Report 20500053 (Version 1)
Quarter: 2022Q1

REPORT INFORMATION
  Report Type: Spontaneous
  Country: US (occurrence: US)
  Receive Date: 20220222
  Receipt Date: 20220222
  Transmission Date: 20220423
  Serious: No
  Sender: FDA-Public Use
  Company Number: US-UCBSA-2021018548

PATIENT
  Sex: Female

DRUGS (3)
  1. KEPPRA [Suspect]
     Active Substance: LEVETIRACETAM
     Indication: Product used for unknown indication
     Dosage: UNK
  2. TUKYSA [Concomitant]
     Active Substance: TUCATINIB
     Indication: Neoplasm malignant
  3. CAPECITABINE [Concomitant]
     Active Substance: CAPECITABINE
     Indication: Product used for unknown indication

REACTIONS (9)
  - Seizure [Unknown]
  - Nausea [Unknown]
  - Balance disorder [Unknown]
  - Constipation [Unknown]
  - Decreased appetite [Unknown]
  - Depression [Unknown]
  - Fatigue [Unknown]
  - Laboratory test abnormal [Unknown]
  - Memory impairment [Unknown]
